FAERS Safety Report 8113129-1 (Version None)
Quarter: 2012Q1

REPORT INFORMATION
  Report Type: 
  Country: None (occurrence: None)
  Receive Date: 20120203
  Receipt Date: 20120124
  Transmission Date: 20120608
  Serious: Yes (Other)
  Sender: FDA-Public Use
  Company Number: US-ELI_LILLY_AND_COMPANY-US201202000173

PATIENT
  Age: 45 Year
  Sex: Male

DRUGS (5)
  1. AXIRON [Suspect]
     Indication: BLOOD TESTOSTERONE DECREASED
     Dosage: 30 MG, QD
     Route: 061
     Dates: start: 20120113, end: 20120113
  2. SIMVASTATIN [Concomitant]
     Dosage: UNK, UNKNOWN
  3. BUPROPION HCL [Concomitant]
     Dosage: UNK, UNKNOWN
  4. MULTIVITAMIN [Concomitant]
     Dosage: UNK, UNKNOWN
  5. MIRTAZAPINE [Concomitant]
     Dosage: UNK, UNKNOWN

REACTIONS (6)
  - SWELLING [None]
  - MALAISE [None]
  - DYSPNOEA [None]
  - SWELLING FACE [None]
  - ARTHRALGIA [None]
  - HYPERSENSITIVITY [None]
